FAERS Safety Report 8535523-7 (Version None)
Quarter: 2012Q3

REPORT INFORMATION
  Report Type: 
  Country: None (occurrence: None)
  Receive Date: 20120725
  Receipt Date: 20120718
  Transmission Date: 20120928
  Serious: Yes (Other)
  Sender: FDA-Public Use
  Company Number: US-CELGENEUS-163-20785-12072163

PATIENT
  Sex: Female
  Weight: 47.216 kg

DRUGS (3)
  1. THALOMID [Suspect]
     Indication: MULTIPLE MYELOMA
     Dosage: 200 MILLIGRAM
     Route: 048
     Dates: start: 20040501, end: 20040101
  2. DECADRON [Concomitant]
     Route: 065
  3. THALOMID [Suspect]
     Indication: PLASMACYTOMA

REACTIONS (2)
  - ASTROCYTOMA [None]
  - LEUKAEMIA PLASMACYTIC [None]
